FAERS Safety Report 5456204-2 (Version None)
Quarter: 2007Q3

REPORT INFORMATION
  Report Type: 
  Country: None (occurrence: None)
  Receive Date: 20070918
  Receipt Date: 20070228
  Transmission Date: 20080115
  Serious: No
  Sender: FDA-Public Use
  Company Number: US-ASTRAZENECA-2006UW23061

PATIENT
  Age: 16364 Day
  Sex: Female
  Weight: 84.5 kg

DRUGS (2)
  1. SEROQUEL [Suspect]
     Route: 048
     Dates: end: 20050801
  2. LEXAPRO [Concomitant]

REACTIONS (1)
  - DIABETES MELLITUS [None]
